FAERS Safety Report 4761103-5 (Version None)
Quarter: 2005Q3

REPORT INFORMATION
  Report Type: 
  Country: None (occurrence: None)
  Receive Date: 20050901
  Receipt Date: 20050901
  Transmission Date: 20060218
  Serious: Yes (Hospitalization, Other)
  Sender: FDA-Public Use
  Company Number: None

PATIENT
  Sex: Male
  Weight: 64.5 kg

DRUGS (2)
  1. GEMCITABINE [Suspect]
     Indication: PANCREATIC CARCINOMA
     Dosage: SEE IMAGE
     Route: 042
     Dates: start: 20050808, end: 20050815
  2. RADIATION [Suspect]
     Dosage: SEE IMAGE
     Dates: start: 20050808

REACTIONS (5)
  - DUODENITIS [None]
  - GASTRITIS [None]
  - HAEMOGLOBIN DECREASED [None]
  - MUSCULAR WEAKNESS [None]
  - UPPER GASTROINTESTINAL HAEMORRHAGE [None]
